FAERS Safety Report 5086488-4 (Version None)
Quarter: 2006Q4

REPORT INFORMATION
  Report Type: 
  Country: None (occurrence: None)
  Receive Date: 20060818
  Receipt Date: 20060803
  Transmission Date: 20070319
  Serious: Yes (Hospitalization)
  Sender: FDA-Public Use
  Company Number: S06-SWI-03316-01

PATIENT
  Age: 81 Year
  Sex: Female

DRUGS (6)
  1. CITALOPRAM HYDROBROMIDE [Suspect]
  2. ASPIRIN [Suspect]
     Dosage: 100 MG QD PO
     Route: 048
     Dates: end: 20060320
  3. ACTOS [Concomitant]
  4. IMOVANE                      (ZOPICLONE) [Concomitant]
  5. TRANSIPEG                       (MACROGOL) [Concomitant]
  6. LANTUS [Concomitant]

REACTIONS (2)
  - BRAIN OEDEMA [None]
  - CEREBRAL HAEMORRHAGE [None]
